FAERS Safety Report 7308205-7 (Version None)
Quarter: 2011Q1

REPORT INFORMATION
  Report Type: 
  Country: None (occurrence: None)
  Receive Date: 20110223
  Receipt Date: 20110217
  Transmission Date: 20110831
  Serious: Yes (Hospitalization)
  Sender: FDA-Public Use
  Company Number: JP-ROCHE-760995

PATIENT
  Age: 15 Year
  Sex: Female

DRUGS (1)
  1. ROCEPHIN [Suspect]
     Indication: MENINGITIS
     Dosage: DOSAGE IS UNCERTAIN
     Route: 042

REACTIONS (1)
  - CHOLELITHIASIS [None]
